FAERS Safety Report 14012851 (Version 1)
Quarter: 2017Q3

REPORT INFORMATION
  Report Type: Spontaneous
  Country: CH (occurrence: CH)
  Receive Date: 20170926
  Receipt Date: 20170926
  Transmission Date: 20171128
  Serious: Yes (Other)
  Sender: FDA-Public Use
  Company Number: PHHY2017CH139929

PATIENT
  Sex: Female

DRUGS (1)
  1. ENTRESTO [Suspect]
     Active Substance: SACUBITRIL\VALSARTAN
     Indication: PRODUCT USED FOR UNKNOWN INDICATION
     Dosage: 50 MG, BID
     Route: 065
     Dates: start: 20170905

REACTIONS (5)
  - Blood pressure increased [Unknown]
  - Oedema [Unknown]
  - N-terminal prohormone brain natriuretic peptide increased [Unknown]
  - Heart rate increased [Unknown]
  - Cough [Unknown]
